FAERS Safety Report 5698190-6 (Version None)
Quarter: 2008Q2

REPORT INFORMATION
  Report Type: 
  Country: None (occurrence: None)
  Receive Date: 20080403
  Receipt Date: 20080321
  Transmission Date: 20081010
  Serious: Yes (Life-Threatening)
  Sender: FDA-Public Use
  Company Number: 000351

PATIENT
  Age: 62 Year
  Sex: Male

DRUGS (8)
  1. BUSULFEX (BUSULFAN) INJECTION, DF [Suspect]
     Indication: STEM CELL TRANSPLANT
     Dates: start: 20070625, end: 20070626
  2. CEFEPIME HYDROCHLORIDE [Suspect]
  3. CEFTAZIDIME [Suspect]
  4. PAZUFLOXACIN MESILATE; [Suspect]
  5. AMOXICILLIN [Concomitant]
  6. UNASYN [Suspect]
  7. PHENYTOIN [Concomitant]
  8. NEUPOGEN [Concomitant]

REACTIONS (3)
  - BLOOD BILIRUBIN INCREASED [None]
  - BONE MARROW TRANSPLANT REJECTION [None]
  - CORD BLOOD TRANSPLANT THERAPY [None]
